FAERS Safety Report 16959796 (Version 1)
Quarter: 2019Q4

REPORT INFORMATION
  Report Type: Spontaneous
  Country: FR (occurrence: FR)
  Receive Date: 20191025
  Receipt Date: 20191025
  Transmission Date: 20200122
  Serious: Yes (Hospitalization)
  Sender: FDA-Public Use
  Company Number: FR-SUN PHARMACEUTICAL INDUSTRIES LTD-2019RR-225104

PATIENT
  Age: 66 Year
  Sex: Female

DRUGS (11)
  1. ALLOPURINOL. [Suspect]
     Active Substance: ALLOPURINOL
     Dosage: ()
     Route: 048
  2. ZANIDIP 10 MG, COMPRIM? PELLICUL? S?CABLE [Suspect]
     Active Substance: LERCANIDIPINE HYDROCHLORIDE
     Indication: HYPERTENSION
     Dosage: ()
     Route: 048
  3. PRETERAX 2,5 MG/0,625 MG, COMPRIME PELLICULE [Suspect]
     Active Substance: INDAPAMIDE\PERINDOPRIL
     Dosage: 2 DOSAGE FORM, DAILY
     Route: 048
  4. ZANIDIP 10 MG, COMPRIME PELLICULE SECABLE [Suspect]
     Active Substance: LERCANIDIPINE HYDROCHLORIDE
     Dosage: ()
     Route: 048
  5. PRETERAX 2,5 MG/0,625 MG, COMPRIME PELLICULE [Suspect]
     Active Substance: INDAPAMIDE\PERINDOPRIL
     Indication: HYPERTENSION
     Dosage: ()
     Route: 048
  6. TEMERIT 5 MG, COMPRIME QUADRISECABLE [Suspect]
     Active Substance: NEBIVOLOL HYDROCHLORIDE
     Indication: HYPERTENSION
     Dosage: 1 DOSAGE FORM
     Route: 048
  7. TEMERIT 5 MG, COMPRIME QUADRISECABLE [Suspect]
     Active Substance: NEBIVOLOL HYDROCHLORIDE
     Dosage: ()
     Route: 048
  8. FLECAINE L.P. 200 MG, GELULE A LIBERATION PROLONGEE [Suspect]
     Active Substance: FLECAINIDE ACETATE
     Indication: ARRHYTHMIA SUPRAVENTRICULAR
     Dosage: 1 DOSAGE FORM, DAILY
     Route: 048
  9. ALLOPURINOL. [Suspect]
     Active Substance: ALLOPURINOL
     Indication: PRODUCT USED FOR UNKNOWN INDICATION
     Dosage: ()
     Route: 048
  10. PREVISCAN 20 MG, COMPRIME SECABLE [Suspect]
     Active Substance: FLUINDIONE
     Indication: ARRHYTHMIA SUPRAVENTRICULAR
     Dosage: 1 DOSAGE FORM, DAILY
     Route: 048
  11. PREVISCAN 20 MG, COMPRIME SECABLE [Suspect]
     Active Substance: FLUINDIONE
     Dosage: ()
     Route: 048

REACTIONS (2)
  - Hypovolaemic shock [Recovered/Resolved]
  - Acute kidney injury [Recovered/Resolved]

NARRATIVE: CASE EVENT DATE: 20190607
